FAERS Safety Report 7541831-9 (Version None)
Quarter: 2011Q2

REPORT INFORMATION
  Report Type: 
  Country: None (occurrence: None)
  Receive Date: 20110613
  Receipt Date: 20110601
  Transmission Date: 20111010
  Serious: Yes (Death, Hospitalization)
  Sender: FDA-Public Use
  Company Number: US-NOVOPROD-329361

PATIENT
  Age: 74 Year
  Sex: Male

DRUGS (8)
  1. NOVOSEVEN RT [Suspect]
     Dosage: 5000 UG, QID
  2. ALBUTEROL [Concomitant]
  3. NOVOSEVEN RT [Suspect]
     Dosage: 5000 UG EVERY FOURTH HOUR FOR 24 HOURS
     Route: 042
  4. NOVOSEVEN RT [Suspect]
     Dosage: 5000 UG, TID
     Route: 042
  5. PREDNISOLONE [Concomitant]
  6. ACETAMINOPHEN AND HYDROCODONE BITARTRATE [Concomitant]
     Indication: ARTHRALGIA
  7. NOVOSEVEN RT [Suspect]
     Indication: ACQUIRED HAEMOPHILIA WITH ANTI FVIII, XI, OR XIII
     Dosage: 5000 UG EVERY THIRD HOUR FOR 24 HOURS
     Route: 042
  8. NOVOSEVEN RT [Suspect]
     Dosage: 4 DOSES, 2 HOURS APART
     Route: 042

REACTIONS (2)
  - ACTIVATED PARTIAL THROMBOPLASTIN TIME PROLONGED [None]
  - GASTROINTESTINAL HAEMORRHAGE [None]
